FAERS Safety Report 8597709-5 (Version None)
Quarter: 2012Q3

REPORT INFORMATION
  Report Type: 
  Country: None (occurrence: None)
  Receive Date: 20120816
  Receipt Date: 20120810
  Transmission Date: 20120928
  Serious: Yes (Other)
  Sender: FDA-Public Use
  Company Number: US-PFIZER INC-2012196045

PATIENT
  Sex: Female

DRUGS (5)
  1. ZOFRAN [Suspect]
     Dosage: UNK
  2. TRAMADOL HCL [Suspect]
     Dosage: UNK
  3. SUMATRIPTAN SUCCINATE [Suspect]
     Dosage: UNK
  4. GABAPENTIN [Suspect]
     Dosage: UNK
  5. ERYTHROMYCIN [Suspect]
     Dosage: UNK

REACTIONS (3)
  - FIBROMYALGIA [None]
  - ARTHRITIS [None]
  - MYASTHENIC SYNDROME [None]
